FAERS Safety Report 5384262-2 (Version None)
Quarter: 2007Q3

REPORT INFORMATION
  Report Type: 
  Country: None (occurrence: None)
  Receive Date: 20070703
  Receipt Date: 20070109
  Transmission Date: 20080115
  Serious: Yes (Hospitalization)
  Sender: FDA-Public Use
  Company Number: 2006-BP-10344BP

PATIENT
  Age: 48 Year
  Sex: Male

DRUGS (5)
  1. MIRAPEX [Suspect]
     Indication: RESTLESS LEGS SYNDROME
     Dosage: (SEE TEXT),PO
     Route: 048
     Dates: start: 19980701, end: 20041201
  2. LIPITOR [Concomitant]
  3. BEXTRA (PARECOXIB SODIUM) [Concomitant]
  4. CANNABIS (CANNABIS SATIVA) [Concomitant]
  5. DIOVAN HCT (CO-DIOVAN) [Concomitant]

REACTIONS (13)
  - BLOOD CHOLESTEROL INCREASED [None]
  - COMPULSIONS [None]
  - CONVULSION [None]
  - EMOTIONAL DISTRESS [None]
  - FALL [None]
  - HYPERPHAGIA [None]
  - HYPERTENSION [None]
  - INJURY [None]
  - LOSS OF CONSCIOUSNESS [None]
  - PANIC DISORDER [None]
  - PATHOLOGICAL GAMBLING [None]
  - TYPE 2 DIABETES MELLITUS [None]
  - WEIGHT INCREASED [None]
